FAERS Safety Report 12852291 (Version 1)
Quarter: 2016Q4

REPORT INFORMATION
  Report Type: Spontaneous
  Country: AU (occurrence: AU)
  Receive Date: 20161017
  Receipt Date: 20161017
  Transmission Date: 20170207
  Serious: Yes (Hospitalization)
  Sender: FDA-Public Use
  Company Number: AU-AMGEN-AUSSP2016140508

PATIENT
  Age: 69 Year
  Sex: Female

DRUGS (11)
  1. CANDESARTAN [Concomitant]
     Active Substance: CANDESARTAN
     Dosage: 16 MG, QD
  2. EXENATIDE [Concomitant]
     Active Substance: EXENATIDE
     Dosage: 10 MUG, BD
     Route: 058
  3. NOVOMIX [Concomitant]
     Active Substance: INSULIN ASPART
     Dosage: 35 UNIT, BD
     Route: 058
  4. PROLIA [Suspect]
     Active Substance: DENOSUMAB
     Indication: OSTEOPOROSIS
     Dosage: 60 MG, Q6MO
     Route: 058
  5. PREGABALIN. [Concomitant]
     Active Substance: PREGABALIN
     Dosage: 150 MG, BD
  6. METFORMIN [Concomitant]
     Active Substance: METFORMIN HYDROCHLORIDE
     Dosage: 1 G, BD
  7. CLOPIDOGREL [Concomitant]
     Active Substance: CLOPIDOGREL BISULFATE
     Dosage: 75 MG, QD
  8. AMLODIPINE [Concomitant]
     Active Substance: AMLODIPINE BESYLATE
     Dosage: 10 MG, MANE
  9. ATORVASTATIN [Concomitant]
     Active Substance: ATORVASTATIN
     Dosage: 40 MG, NOCTE
  10. PARACETAMOL OSTEO [Concomitant]
     Dosage: 2 TABS BD
  11. CHOLECALCIFEROL [Concomitant]
     Active Substance: CHOLECALCIFEROL
     Dosage: 1000 UNIT, UNK

REACTIONS (4)
  - Nausea [Unknown]
  - Abdominal pain [Unknown]
  - Biopsy lymph gland [Unknown]
  - High frequency ablation [Unknown]

NARRATIVE: CASE EVENT DATE: 20161005
